FAERS Safety Report 17565109 (Version 2)
Quarter: 2022Q1

REPORT INFORMATION
  Report Type: Spontaneous
  Country: PL (occurrence: PL)
  Receive Date: 20200320
  Receipt Date: 20220222
  Transmission Date: 20220423
  Serious: Yes (Hospitalization, Other)
  Sender: FDA-Public Use
  Company Number: PL-TEVA-2020-PL-1203646

PATIENT
  Sex: Male

DRUGS (11)
  1. CYCLOSPORINE [Suspect]
     Active Substance: CYCLOSPORINE
     Indication: Immunosuppressant drug therapy
     Dosage: 50 MILLIGRAM DAILY;
     Route: 065
  2. MYCOPHENOLATE MOFETIL [Suspect]
     Active Substance: MYCOPHENOLATE MOFETIL
     Indication: Immunosuppressant drug therapy
     Route: 065
     Dates: start: 200003
  3. DOXORUBICIN [Suspect]
     Active Substance: DOXORUBICIN
     Indication: Hodgkin^s disease
     Dosage: 6 COURSES
     Route: 065
     Dates: start: 201401, end: 201410
  4. AZATHIOPRINE [Suspect]
     Active Substance: AZATHIOPRINE
     Indication: Immunosuppressant drug therapy
     Route: 065
     Dates: end: 200003
  5. METHYLPREDNISOLONE [Suspect]
     Active Substance: METHYLPREDNISOLONE
     Indication: Immunosuppressant drug therapy
     Dosage: RECEIVED PULSES OF METHYLPREDNISOLONE
     Route: 065
  6. RITUXIMAB [Suspect]
     Active Substance: RITUXIMAB
     Indication: Hodgkin^s disease
     Dosage: 8 COURSES OF RITUXIMAB
     Route: 065
     Dates: start: 201401, end: 201410
  7. BLEOMYCIN [Suspect]
     Active Substance: BLEOMYCIN SULFATE
     Indication: Hodgkin^s disease
     Dosage: 6 COURSES
     Route: 065
     Dates: start: 201401, end: 201410
  8. VINBLASTINE [Suspect]
     Active Substance: VINBLASTINE
     Indication: Hodgkin^s disease
     Dosage: 6 COURSES
     Route: 065
     Dates: start: 201401, end: 201410
  9. DACARBAZINE [Suspect]
     Active Substance: DACARBAZINE
     Indication: Hodgkin^s disease
     Dosage: 6 COURSES
     Route: 065
     Dates: start: 201401, end: 201410
  10. LEFLUNOMIDE [Suspect]
     Active Substance: LEFLUNOMIDE
     Indication: Immunosuppressant drug therapy
     Route: 065
     Dates: end: 2015
  11. PREDNISONE [Suspect]
     Active Substance: PREDNISONE
     Indication: Immunosuppressant drug therapy
     Dosage: 5 MILLIGRAM DAILY; DOSE TAPERED
     Route: 065

REACTIONS (23)
  - Cytomegalovirus infection [Unknown]
  - Encephalitis fungal [Unknown]
  - Hodgkin^s disease [Unknown]
  - Epstein-Barr virus infection [Unknown]
  - Cytomegalovirus infection reactivation [Unknown]
  - Chronic allograft nephropathy [Unknown]
  - Staphylococcal sepsis [Recovering/Resolving]
  - Herpes simplex [Recovering/Resolving]
  - Cardiac failure [Recovering/Resolving]
  - Orthopnoea [Unknown]
  - Pneumonia [Recovered/Resolved]
  - Endocarditis [Unknown]
  - Pleural effusion [Unknown]
  - Ascites [Unknown]
  - Lung abscess [Unknown]
  - Staphylococcal infection [Unknown]
  - Emphysema [Recovering/Resolving]
  - Nephropathy [Recovering/Resolving]
  - Renal failure [Recovering/Resolving]
  - End stage renal disease [Recovering/Resolving]
  - Bronchitis bacterial [Recovering/Resolving]
  - Cardiorenal syndrome [Recovering/Resolving]
  - Renal impairment [Recovering/Resolving]

NARRATIVE: CASE EVENT DATE: 20001001
